FAERS Safety Report 14578834 (Version 1)
Quarter: 2018Q1

REPORT INFORMATION
  Report Type: Spontaneous
  Country: US (occurrence: US)
  Receive Date: 20180227
  Receipt Date: 20180227
  Transmission Date: 20180509
  Serious: Yes (Other)
  Sender: FDA-Public Use
  Company Number: US-AKORN PHARMACEUTICALS-2018AKN00187

PATIENT
  Age: 15 Year
  Sex: Female
  Weight: 70.3 kg

DRUGS (1)
  1. MYORISAN [Suspect]
     Active Substance: ISOTRETINOIN
     Indication: HIDRADENITIS
     Dosage: 40 MG, 2X/DAY
     Route: 048
     Dates: start: 20171031, end: 20180129

REACTIONS (4)
  - Sexually transmitted disease [Recovered/Resolved]
  - Treatment noncompliance [Recovered/Resolved]
  - Off label use [Recovered/Resolved]
  - Depression [Recovered/Resolved]

NARRATIVE: CASE EVENT DATE: 20171031
